FAERS Safety Report 10020445 (Version 1)
Quarter: 2014Q1

REPORT INFORMATION
  Report Type: Spontaneous
  Country: US (occurrence: US)
  Receive Date: 20140319
  Receipt Date: 20140319
  Transmission Date: 20141002
  Serious: No
  Sender: FDA-Public Use
  Company Number: US-BIOGENIDEC-2014BI022575

PATIENT
  Age: 43 Year
  Sex: Female

DRUGS (5)
  1. TECFIDERA [Suspect]
     Indication: MULTIPLE SCLEROSIS
     Route: 048
     Dates: start: 20140305
  2. DEPAKOTE [Concomitant]
  3. KEPPRA [Concomitant]
  4. TRAZODONE HCL [Concomitant]
  5. ZOLOFT [Concomitant]

REACTIONS (2)
  - Flushing [Recovered/Resolved]
  - Chills [Recovered/Resolved]
